FAERS Safety Report 8188774-8 (Version None)
Quarter: 2012Q1

REPORT INFORMATION
  Report Type: 
  Country: None (occurrence: None)
  Receive Date: 20120306
  Receipt Date: 20120301
  Transmission Date: 20120608
  Serious: Yes (Hospitalization)
  Sender: FDA-Public Use
  Company Number: BR-ABBOTT-12P-020-0902801-00

PATIENT
  Sex: Female

DRUGS (1)
  1. HUMIRA [Suspect]
     Indication: RHEUMATOID ARTHRITIS
     Dates: start: 20080101, end: 20091201

REACTIONS (4)
  - FIBROMYALGIA [None]
  - DRUG INEFFECTIVE [None]
  - BACK PAIN [None]
  - ARTHRITIS [None]
